FAERS Safety Report 4843707-4 (Version None)
Quarter: 2005Q4

REPORT INFORMATION
  Report Type: 
  Country: None (occurrence: None)
  Receive Date: 20051202
  Receipt Date: 20051119
  Transmission Date: 20060501
  Serious: Yes (Death)
  Sender: FDA-Public Use
  Company Number: FR-JNJFOC-20051105181

PATIENT
  Age: 22 Year
  Sex: Male

DRUGS (6)
  1. HALDOL [Suspect]
     Indication: SCHIZOPHRENIA
  2. TERCIAN [Concomitant]
     Dosage: DOSE: 300 - 400 MG/DAY
  3. TEGRETOL [Concomitant]
  4. THERALENE [Concomitant]
     Dosage: DOSE: DRUG GIVEN ON REQUEST
  5. LEPTICUR [Concomitant]
  6. AKINETON [Concomitant]

REACTIONS (3)
  - ANTIPSYCHOTIC DRUG LEVEL INCREASED [None]
  - DEATH [None]
  - GASTROINTESTINAL DISORDER [None]
